FAERS Safety Report 19424737 (Version 4)
Quarter: 2022Q1

REPORT INFORMATION
  Report Type: Report from Study
  Country: GB (occurrence: GB)
  Receive Date: 20210617
  Receipt Date: 20220219
  Transmission Date: 20220423
  Serious: Yes (Death, Hospitalization)
  Sender: FDA-Public Use
  Company Number: GB-CELLTRION INC.-2021GB008101

PATIENT

DRUGS (81)
  1. TRASTUZUMAB [Suspect]
     Active Substance: TRASTUZUMAB
     Indication: Breast cancer metastatic
     Dosage: 882 MG EVERY 3 WEEKS (DOSAGE FORM: 230) (CUMULATIVE DOSE: 18102.0MG)
     Route: 042
     Dates: start: 20180116, end: 20180116
  2. TRASTUZUMAB [Suspect]
     Active Substance: TRASTUZUMAB
     Dosage: 882 MG EVERY 3 WEEKS (DOSAGE FORM: 230) (CUMULATIVE DOSE: 18102.0MG)
     Route: 042
     Dates: start: 20180116, end: 20180116
  3. TRASTUZUMAB [Suspect]
     Active Substance: TRASTUZUMAB
     Dosage: 882 MG EVERY 3 WEEKS (DOSAGE FORM: 230) (CUMULATIVE DOSE: 18102.0MG)
     Route: 042
     Dates: start: 20180116, end: 20180116
  4. TRASTUZUMAB [Suspect]
     Active Substance: TRASTUZUMAB
     Dosage: 882 MG EVERY 3 WEEKS (DOSAGE FORM: 230) (CUMULATIVE DOSE: 18102.0MG)
     Route: 042
     Dates: start: 20180116, end: 20180116
  5. TRASTUZUMAB [Suspect]
     Active Substance: TRASTUZUMAB
     Dosage: 588 MG EVERY 3 WEEKS (DOSE FORM: 230) (CUMUALTIVE DOSE: 9073.167 MG)
     Route: 041
     Dates: start: 20180503, end: 20181115
  6. TRASTUZUMAB [Suspect]
     Active Substance: TRASTUZUMAB
     Dosage: 588 MG EVERY 3 WEEKS (DOSE FORM: 230)  (CUMUALTIVE DOSE: 9073.167 MG)
     Route: 041
     Dates: start: 20180503, end: 20181115
  7. TRASTUZUMAB [Suspect]
     Active Substance: TRASTUZUMAB
     Dosage: 588 MG EVERY 3 WEEKS (DOSE FORM: 230)  (CUMUALTIVE DOSE: 9073.167 MG)
     Route: 041
     Dates: start: 20180503, end: 20181115
  8. TRASTUZUMAB [Suspect]
     Active Substance: TRASTUZUMAB
     Dosage: 588 MG EVERY 3 WEEKS (DOSE FORM: 230) (CUMUALTIVE DOSE: 9073.167 MG)
     Route: 041
     Dates: start: 20180503, end: 20181115
  9. TRASTUZUMAB [Suspect]
     Active Substance: TRASTUZUMAB
     Dosage: 588 MG EVERY 3 WEEKS (DOSE FORM: 230)  (CUMUALTIVE DOSE: 1792.0 MG)
     Route: 042
     Dates: start: 20190118, end: 20190322
  10. TRASTUZUMAB [Suspect]
     Active Substance: TRASTUZUMAB
     Dosage: 588 MG EVERY 3 WEEKS (DOSE FORM: 230) (CUMUALTIVE DOSE: 1792.0 MG)
     Route: 042
     Dates: start: 20190118, end: 20190322
  11. TRASTUZUMAB [Suspect]
     Active Substance: TRASTUZUMAB
     Dosage: 588 MG EVERY 3 WEEKS (DOSE FORM: 230)  (CUMUALTIVE DOSE: 1792.0 MG)
     Route: 042
     Dates: start: 20190118, end: 20190322
  12. TRASTUZUMAB [Suspect]
     Active Substance: TRASTUZUMAB
     Dosage: 588 MG EVERY 3 WEEKS (DOSE FORM: 230)  (CUMUALTIVE DOSE: 1792.0 MG)
     Route: 042
     Dates: start: 20190118, end: 20190322
  13. TRASTUZUMAB [Suspect]
     Active Substance: TRASTUZUMAB
     Dosage: 735 MG EVERY 3 WEEKS (DOSE FORM: 230) (CUMUALTIVE DOSE: 2378.5417 MG)
     Route: 042
     Dates: start: 20190530
  14. TRASTUZUMAB [Suspect]
     Active Substance: TRASTUZUMAB
     Dosage: 735 MG EVERY 3 WEEKS (DOSE FORM: 230) (CUMUALTIVE DOSE: 2378.5417 MG)
     Route: 042
     Dates: start: 20190530
  15. TRASTUZUMAB [Suspect]
     Active Substance: TRASTUZUMAB
     Dosage: 735 MG EVERY 3 WEEKS (DOSE FORM: 230) (CUMUALTIVE DOSE: 2378.5417 MG)
     Route: 042
     Dates: start: 20190530
  16. TRASTUZUMAB [Suspect]
     Active Substance: TRASTUZUMAB
     Dosage: 735 MG EVERY 3 WEEKS (DOSE FORM: 230) (CUMUALTIVE DOSE: 2378.5417 MG)
     Route: 042
     Dates: start: 20190530
  17. LETROZOLE [Suspect]
     Active Substance: LETROZOLE
     Indication: Breast cancer metastatic
     Dosage: 2.5 MG, EVERY 1 DAY
     Route: 048
     Dates: start: 20171128
  18. PERTUZUMAB [Suspect]
     Active Substance: PERTUZUMAB
     Indication: Breast cancer metastatic
     Dosage: 840 MG EVERY 3 WEEKS (DOSAGE FORM: 230) (CUMULATIVE DOSE: 17240 MG)
     Route: 042
     Dates: start: 20180116, end: 20180116
  19. PERTUZUMAB [Suspect]
     Active Substance: PERTUZUMAB
     Dosage: 840 MG EVERY 3 WEEKS (DOSAGE FORM: 230) (CUMULATIVE DOSE: 17240 MG)
     Route: 042
     Dates: start: 20180116, end: 20180116
  20. PERTUZUMAB [Suspect]
     Active Substance: PERTUZUMAB
     Dosage: 840 MG EVERY 3 WEEKS (DOSAGE FORM: 230) (CUMULATIVE DOSE: 17240 MG)
     Route: 042
     Dates: start: 20180116, end: 20180116
  21. PERTUZUMAB [Suspect]
     Active Substance: PERTUZUMAB
     Dosage: 840 MG EVERY 3 WEEKS (DOSAGE FORM: 230) (CUMULATIVE DOSE: 17240 MG)
     Route: 042
     Dates: start: 20180116, end: 20180116
  22. PERTUZUMAB [Suspect]
     Active Substance: PERTUZUMAB
     Dosage: 420 MG EVERY 3 WEEKS (DOSAGE FORM: 230) (CUMULATIVE DOSE: 6480.8335 MG)
     Route: 042
     Dates: start: 20180503, end: 20181115
  23. PERTUZUMAB [Suspect]
     Active Substance: PERTUZUMAB
     Dosage: 420 MG EVERY 3 WEEKS (DOSAGE FORM: 230) (CUMULATIVE DOSE: 6480.8335 MG)
     Route: 042
     Dates: start: 20180503, end: 20181115
  24. PERTUZUMAB [Suspect]
     Active Substance: PERTUZUMAB
     Dosage: 420 MG EVERY 3 WEEKS (DOSAGE FORM: 230) (CUMULATIVE DOSE: 6480.8335 MG)
     Route: 042
     Dates: start: 20180503, end: 20181115
  25. PERTUZUMAB [Suspect]
     Active Substance: PERTUZUMAB
     Dosage: 420 MG EVERY 3 WEEKS (DOSAGE FORM: 230) (CUMULATIVE DOSE: 6480.8335 MG)
     Route: 042
     Dates: start: 20180503, end: 20181115
  26. PERTUZUMAB [Suspect]
     Active Substance: PERTUZUMAB
     Dosage: 420 MG EVERY 3 WEEKS (DOSAGE FORM: 230) (CUMULATIVE DOSE: 1280 MG)
     Route: 042
     Dates: start: 20190118, end: 20190322
  27. PERTUZUMAB [Suspect]
     Active Substance: PERTUZUMAB
     Dosage: 420 MG EVERY 3 WEEKS (DOSAGE FORM: 230)  (CUMULATIVE DOSE: 1280 MG)
     Route: 042
     Dates: start: 20190118, end: 20190322
  28. PERTUZUMAB [Suspect]
     Active Substance: PERTUZUMAB
     Dosage: 420 MG EVERY 3 WEEKS (DOSAGE FORM: 230)  (CUMULATIVE DOSE: 1280 MG)
     Route: 042
     Dates: start: 20190118, end: 20190322
  29. PERTUZUMAB [Suspect]
     Active Substance: PERTUZUMAB
     Dosage: 420 MG EVERY 3 WEEKS (DOSAGE FORM: 230) (CUMULATIVE DOSE: 1280 MG)
     Route: 042
     Dates: start: 20190118, end: 20190322
  30. PERTUZUMAB [Suspect]
     Active Substance: PERTUZUMAB
     Dosage: 840 MG EVERY 3 WEEKS (DOSAGE FORM: 230) (CUMULATIVE DOSE: 120.0 MG)
     Route: 042
     Dates: start: 20190320, end: 20190711
  31. PERTUZUMAB [Suspect]
     Active Substance: PERTUZUMAB
     Dosage: 840 MG EVERY 3 WEEKS (DOSAGE FORM: 230) (CUMULATIVE DOSE: 120.0 MG)
     Route: 042
     Dates: start: 20190320, end: 20190711
  32. PERTUZUMAB [Suspect]
     Active Substance: PERTUZUMAB
     Dosage: 840 MG EVERY 3 WEEKS (DOSAGE FORM: 230) (CUMULATIVE DOSE: 120.0 MG)
     Route: 042
     Dates: start: 20190320, end: 20190711
  33. PERTUZUMAB [Suspect]
     Active Substance: PERTUZUMAB
     Dosage: 840 MG EVERY 3 WEEKS (DOSAGE FORM: 230) (CUMULATIVE DOSE: 120.0 MG)
     Route: 042
     Dates: start: 20190320, end: 20190711
  34. CAPECITABINE [Suspect]
     Active Substance: CAPECITABINE
     Indication: Breast cancer metastatic
     Dosage: 1800 MG, TWICE DAILY
     Route: 048
     Dates: start: 20191011
  35. CAPECITABINE [Suspect]
     Active Substance: CAPECITABINE
     Dosage: 1800 MG, ONCE IN 2 WEEKS
     Route: 048
  36. CAPECITABINE [Suspect]
     Active Substance: CAPECITABINE
     Dosage: 2000 MG TWICE A DAY
     Route: 048
     Dates: start: 20191204, end: 20200214
  37. AMOXICILLIN [Concomitant]
     Active Substance: AMOXICILLIN
     Indication: Urinary tract infection
     Dosage: 1500 MG EVERY 1 DAY
     Route: 042
     Dates: start: 20190330, end: 20190401
  38. ASPIRIN [Concomitant]
     Active Substance: ASPIRIN
     Dosage: 75 MG EVERY 1 DAY (DOSAGE FORM: 245)
     Route: 048
     Dates: start: 2019, end: 2019
  39. ATROVENT [Concomitant]
     Active Substance: IPRATROPIUM BROMIDE
     Indication: Dyspnoea
     Dosage: 0.5 MG, EVERY 1 DAY
     Route: 055
     Dates: start: 20200224, end: 20200224
  40. CEPHALEXIN [Concomitant]
     Active Substance: CEPHALEXIN
     Indication: Urinary tract infection
     Dosage: UNK
     Route: 048
     Dates: start: 20190208, end: 2019
  41. CLOTRIMAZOLE [Concomitant]
     Active Substance: CLOTRIMAZOLE
     Dosage: 2 %, EVERY 1 DAY (DOSAGE FORM: 17)
     Route: 061
     Dates: start: 202002
  42. COCODAMOL [Concomitant]
     Active Substance: ACETAMINOPHEN\CODEINE PHOSPHATE
     Dosage: 30 MG, AS NECESSARY (DOSAGE FORM: 245)
     Route: 048
     Dates: start: 20200512
  43. CYCLIZINE [Concomitant]
     Active Substance: CYCLIZINE
     Dosage: 150 MG, EVERY 1 DAY (DOSAGE FORM: 245 DAYS)
     Route: 048
     Dates: start: 2019, end: 20190403
  44. CYCLIZINE [Concomitant]
     Active Substance: CYCLIZINE
     Dosage: 150 MG, EVERY 1 DAY (DOSAGE FORM: 245 DAYS)
     Route: 048
     Dates: start: 20190331, end: 20190404
  45. DENOSUMAB [Concomitant]
     Active Substance: DENOSUMAB
     Dosage: 120 MG
     Route: 058
     Dates: start: 20180503, end: 20200214
  46. DEXAMETHASONE [Concomitant]
     Active Substance: DEXAMETHASONE
     Indication: Metastases to central nervous system
     Dosage: 16 MG, EVERY 1 DAY (DOSAGE FORM: 245)
     Route: 048
     Dates: start: 201812, end: 201812
  47. DEXAMETHASONE [Concomitant]
     Active Substance: DEXAMETHASONE
     Dosage: 16 MG, EVERY 1 DAY (DOSAGE FORM: 245)
     Route: 048
     Dates: start: 20190417, end: 20190424
  48. DEXAMETHASONE [Concomitant]
     Active Substance: DEXAMETHASONE
     Dosage: 8 MG, EVERY 1 DAY (DOSAGE FORM: 245) (CUMULATIVE DOSE: 576 MG)
     Route: 048
     Dates: start: 20190110, end: 2019
  49. DEXAMETHASONE [Concomitant]
     Active Substance: DEXAMETHASONE
     Dosage: 12 MG, EVERY 1 DAY (DOSAGE FORM: 245)
     Route: 048
     Dates: start: 20190109
  50. DEXAMETHASONE [Concomitant]
     Active Substance: DEXAMETHASONE
     Dosage: 2 MG, EVERY 1 DAY (DOSAGE FORM: 245) (CUMULATIVE DOSE: 65.916664)
     Route: 048
     Dates: start: 20190425, end: 2019
  51. DEXAMETHASONE [Concomitant]
     Active Substance: DEXAMETHASONE
     Dosage: 16 MG, EVERY 1 DAY (DOSAGE FORM: 245)
     Route: 048
     Dates: start: 202005
  52. ENOXAPARIN [Concomitant]
     Active Substance: ENOXAPARIN
     Dosage: 80 MG EVERY 1 DAY
     Route: 058
     Dates: start: 202002
  53. FOLIC ACID [Concomitant]
     Active Substance: FOLIC ACID
     Dosage: 5 MG, EVERY 1 DAY (DOSAGE FORM: 245)
     Route: 048
     Dates: start: 20160211
  54. GLYCOPYRROLATE [Concomitant]
     Active Substance: GLYCOPYRROLATE
     Dosage: 400 UG, AS NECESSARY
     Route: 058
     Dates: start: 20190330
  55. HYDROCORTISONE [Concomitant]
     Active Substance: HYDROCORTISONE
     Dosage: 0.5 %, AS NECESSARY (DOSAGE FORM: 17)
     Route: 061
     Dates: start: 20191025, end: 2019
  56. LACOSAMIDE [Concomitant]
     Active Substance: LACOSAMIDE
     Dosage: 100 MG, EVERY 1 DAY (DOSAGE FORM: 245) (CUMULATIVE DOSE: 41595.832 MG)
     Route: 048
     Dates: start: 20200512, end: 20200519
  57. LACOSAMIDE [Concomitant]
     Active Substance: LACOSAMIDE
     Dosage: 200 MG, EVERY 1 DAY (DOSAGE: 245) (CUMULATIVE DOSE: 84591.664 MG)
     Route: 048
     Dates: start: 20200519
  58. LANSOPRAZOLE [Concomitant]
     Active Substance: LANSOPRAZOLE
     Indication: Metastases to central nervous system
     Dosage: 30 MG, EVERY 1 DAY (DOSAGE FORM: 5)
     Route: 048
     Dates: start: 201812
  59. LEVETIRACETAM [Concomitant]
     Active Substance: LEVETIRACETAM
     Indication: Seizure
     Dosage: 3000 MG, EVERY 1 DAY (DOSAGE FORM: 245)
     Route: 048
  60. METFORMIN [Concomitant]
     Active Substance: METFORMIN HYDROCHLORIDE
     Dosage: 500 MG, EVERY 1 DAY (DOSAGE FORM: 245)
     Route: 065
     Dates: end: 2018
  61. METRONIDAZOLE [Concomitant]
     Active Substance: METRONIDAZOLE
     Indication: Diarrhoea
     Dosage: 1200 MG, EVERY 1 DAY (DOSAGE FORM: 245)
     Route: 048
     Dates: start: 20190401, end: 20190403
  62. MIDAZOLAM [Concomitant]
     Active Substance: MIDAZOLAM
     Dosage: 2.5 MG, EVERY 2 DAYS (DOSAGE FORM: 9)
     Route: 058
  63. MIDAZOLAM [Concomitant]
     Active Substance: MIDAZOLAM
     Dosage: 10 MG, AS NECESSARY
     Route: 065
     Dates: start: 2020
  64. MIDAZOLAM [Concomitant]
     Active Substance: MIDAZOLAM
     Dosage: 30 MG
     Route: 058
     Dates: start: 2020
  65. MORPHINE SULFATE [Concomitant]
     Active Substance: MORPHINE SULFATE
     Dosage: 2.5 MG, AS NECESSARY
     Route: 058
     Dates: start: 20190330
  66. NIFEDIPINE [Concomitant]
     Active Substance: NIFEDIPINE
     Dosage: 60 MG, EVERY 1 DAY (DOSAGE FORM: 5)
     Route: 048
     Dates: end: 2018
  67. NITROFURANTOIN [Concomitant]
     Active Substance: NITROFURANTOIN
     Dosage: 200 MG, EVERY 1 DAY (DOSAGE FORM: 245)
     Route: 048
     Dates: start: 20190403, end: 20190405
  68. NYSTATIN [Concomitant]
     Active Substance: NYSTATIN
     Dosage: 4 MG, 1 EVERY 1 DAY
     Route: 048
     Dates: start: 20200505, end: 20200511
  69. ONDANSETRON [Concomitant]
     Active Substance: ONDANSETRON
     Dosage: 12 MG, EVERY 1 DAY (DOSAGE FORM: 245)
     Route: 048
     Dates: start: 2019
  70. ONDANSETRON [Concomitant]
     Active Substance: ONDANSETRON
     Dosage: 4 MG, EVERY 1 DAY
     Route: 042
     Dates: start: 20190323, end: 20190325
  71. ACETAMINOPHEN [Concomitant]
     Active Substance: ACETAMINOPHEN
     Dosage: 500 MG, AS NECESSARY (DOSAGE FORM: 245)
     Route: 048
  72. PLASMA-LYTE 148 [Concomitant]
     Active Substance: MAGNESIUM CHLORIDE\POTASSIUM CHLORIDE\SODIUM ACETATE\SODIUM CHLORIDE\SODIUM GLUCONATE
     Indication: Dyspnoea
     Dosage: 2000 MG, EVERY 1 DAY
     Route: 042
     Dates: start: 20200224, end: 20200224
  73. POTASSIUM CHLORIDE [Concomitant]
     Active Substance: POTASSIUM CHLORIDE
     Indication: Hypokalaemia
     Dosage: DOSE: 1, EVERY 1 DAY
     Route: 042
     Dates: start: 20190329, end: 20190401
  74. SODIUM CHLORIDE [Concomitant]
     Active Substance: SODIUM CHLORIDE
     Indication: Hypokalaemia
     Dosage: 1 DOSE, DAILY
     Route: 042
     Dates: start: 20190329, end: 20190401
  75. PROCHLORPERAZINE [Concomitant]
     Active Substance: PROCHLORPERAZINE
     Dosage: 6 MG, EVERY 1 DAY (DOSAGE FORM: 245)
     Route: 065
     Dates: start: 2020
  76. ROSUVASTATIN [Concomitant]
     Active Substance: ROSUVASTATIN
     Dosage: 5 MG, EVERY 1 DAY (DOSAGE FORM: 245)
     Route: 048
     Dates: end: 2019
  77. ALBUTEROL [Concomitant]
     Active Substance: ALBUTEROL
     Indication: Dyspnoea
     Dosage: 10 MG, EVERY 1 DAY
     Route: 055
     Dates: start: 20200224, end: 20200225
  78. SERTRALINE [Concomitant]
     Active Substance: SERTRALINE HYDROCHLORIDE
     Dosage: 50 MG, EVERY 1 DAY (DOSAGE FORM: 245)
     Route: 048
  79. SIMVASTATIN [Concomitant]
     Active Substance: SIMVASTATIN
     Dosage: 20 MG, EVERY 1 DAY (DOSAGE FORM: 245)
     Route: 048
     Dates: start: 2019
  80. PIPERACILLIN SODIUM\TAZOBACTAM SODIUM [Concomitant]
     Active Substance: PIPERACILLIN SODIUM\TAZOBACTAM SODIUM
     Indication: Dyspnoea
     Dosage: 4.5 G, EVERY 1 DAY
     Route: 042
     Dates: start: 20200224, end: 20200224
  81. VANCOMYCIN [Concomitant]
     Active Substance: VANCOMYCIN
     Dosage: 500 MG, EVERY 1 DAY (DOSAGE FORM: 5)
     Route: 048
     Dates: start: 20200302, end: 20200316

REACTIONS (6)
  - Disease progression [Fatal]
  - Hypokalaemia [Unknown]
  - Vomiting [Recovered/Resolved]
  - Diarrhoea [Unknown]
  - Vomiting [Unknown]
  - Urinary tract infection [Unknown]

NARRATIVE: CASE EVENT DATE: 20190323
